FAERS Safety Report 20805621 (Version 1)
Quarter: 2022Q2

REPORT INFORMATION
  Report Type: Report from Study
  Country: AU (occurrence: AU)
  Receive Date: 20220510
  Receipt Date: 20220510
  Transmission Date: 20220720
  Serious: Yes (Life-Threatening, Hospitalization, Other)
  Sender: FDA-Public Use
  Company Number: AU-BRISTOL-MYERS SQUIBB COMPANY-2022-036472

PATIENT
  Age: 51 Year
  Sex: Female
  Weight: 56.7 kg

DRUGS (18)
  1. LENALIDOMIDE [Suspect]
     Active Substance: LENALIDOMIDE
     Indication: Plasma cell myeloma
     Route: 048
     Dates: start: 20190703, end: 20190707
  2. LENALIDOMIDE [Suspect]
     Active Substance: LENALIDOMIDE
     Route: 048
     Dates: start: 20190715
  3. DEXAMETHASONE [Suspect]
     Active Substance: DEXAMETHASONE
     Indication: Plasma cell myeloma
     Route: 048
     Dates: start: 20190703, end: 20190706
  4. BORTEZOMIB [Suspect]
     Active Substance: BORTEZOMIB
     Indication: Plasma cell myeloma
     Route: 058
     Dates: start: 20190703, end: 20190706
  5. BORTEZOMIB [Suspect]
     Active Substance: BORTEZOMIB
     Route: 058
     Dates: start: 20190712
  6. DARATUMUMAB [Suspect]
     Active Substance: DARATUMUMAB
     Indication: Plasma cell myeloma
     Route: 058
  7. DOCUSATE SODIUM\SENNOSIDES A AND B [Concomitant]
     Active Substance: DOCUSATE SODIUM\SENNOSIDES A AND B
     Indication: Prophylaxis
     Route: 048
     Dates: start: 20190624
  8. NALOXONE HYDROCHLORIDE\OXYCODONE HYDROCHLORIDE [Concomitant]
     Active Substance: NALOXONE HYDROCHLORIDE\OXYCODONE HYDROCHLORIDE
     Indication: Analgesic therapy
     Dosage: 20/10 MILLIGRAM
     Route: 048
     Dates: start: 20190703, end: 20190706
  9. NALOXONE HYDROCHLORIDE\OXYCODONE HYDROCHLORIDE [Concomitant]
     Active Substance: NALOXONE HYDROCHLORIDE\OXYCODONE HYDROCHLORIDE
     Dosage: 5/2.5 MILLIGRAM
     Route: 048
     Dates: start: 20190704, end: 20190707
  10. ACETAMINOPHEN [Concomitant]
     Active Substance: ACETAMINOPHEN
     Indication: Analgesic therapy
     Dosage: 20/10 MILLIGRAM
     Route: 048
     Dates: start: 20190624
  11. PIPERACILLIN SODIUM\TAZOBACTAM SODIUM [Concomitant]
     Active Substance: PIPERACILLIN SODIUM\TAZOBACTAM SODIUM
     Indication: Product used for unknown indication
     Dosage: 20/10 MILLIGRAM
     Route: 042
     Dates: start: 20190707, end: 20190707
  12. PREGABALIN [Concomitant]
     Active Substance: PREGABALIN
     Indication: Analgesic therapy
     Dosage: 20/10 MILLIGRAM
     Route: 048
     Dates: start: 20190703
  13. ALLOPURINOL [Concomitant]
     Active Substance: ALLOPURINOL
     Indication: Prophylaxis
     Dosage: 20/10 MILLIGRAM
     Route: 048
     Dates: start: 20190704
  14. CALCITRIOL [Concomitant]
     Active Substance: CALCITRIOL
     Indication: Mineral supplementation
     Dosage: 20/10 MILLIGRAM
     Route: 048
     Dates: start: 20190718
  15. CALCIUM CITRATE [Concomitant]
     Active Substance: CALCIUM CITRATE
     Indication: Mineral supplementation
     Dosage: 20/10 MILLIGRAM
     Route: 048
     Dates: start: 20190717
  16. CHOLECALCIFEROL [Concomitant]
     Active Substance: CHOLECALCIFEROL
     Indication: Mineral supplementation
     Dosage: 20/10 MILLIGRAM
     Route: 048
     Dates: start: 20190717, end: 20190719
  17. ENOXAPARIN [Concomitant]
     Active Substance: ENOXAPARIN
     Indication: Thrombosis prophylaxis
     Dosage: 20/10 MILLIGRAM
     Route: 058
     Dates: start: 20190703, end: 20190707
  18. OXYCODONE [Concomitant]
     Active Substance: OXYCODONE
     Indication: Product used for unknown indication
     Dosage: 20/10 MILLIGRAM
     Route: 048
     Dates: start: 20190725

REACTIONS (1)
  - Systemic inflammatory response syndrome [Recovered/Resolved]

NARRATIVE: CASE EVENT DATE: 20190707
